FAERS Safety Report 12961100 (Version 1)
Quarter: 2016Q4

REPORT INFORMATION
  Report Type: Spontaneous
  Country: GB (occurrence: GB)
  Receive Date: 20161121
  Receipt Date: 20161121
  Transmission Date: 20170207
  Serious: Yes (Other)
  Sender: FDA-Public Use
  Company Number: GB-PFIZER INC-2016535135

PATIENT
  Age: 80 Year
  Sex: Male
  Weight: 83 kg

DRUGS (7)
  1. AMOROLFINE [Concomitant]
     Active Substance: AMOROLFINE
     Dosage: ONE OR TWICE WEEKLY
     Dates: start: 20160928, end: 20160929
  2. AMLODIPINE BESILATE [Suspect]
     Active Substance: AMLODIPINE BESYLATE
     Dosage: UNK
     Dates: start: 20161107
  3. SPIRONOLACTONE. [Concomitant]
     Active Substance: SPIRONOLACTONE
     Dosage: 1 DF, 1X/DAY
     Dates: start: 20141014, end: 20160809
  4. BENDROFLUMETHIAZIDE [Concomitant]
     Active Substance: BENDROFLUMETHIAZIDE
     Dosage: 1 DF, 1X/DAY EACH MORNING.
     Dates: start: 20161107
  5. PROSCAR [Concomitant]
     Active Substance: FINASTERIDE
     Dosage: 1 DF, 1X/DAY
     Dates: start: 20141014
  6. FLOMAXTRA XL [Concomitant]
     Active Substance: TAMSULOSIN HYDROCHLORIDE
     Dosage: 1 DF, 1X/DAY
     Dates: start: 20141014
  7. RAMIPRIL. [Concomitant]
     Active Substance: RAMIPRIL
     Dosage: 1 DF, 1X/DAY
     Dates: start: 20141014

REACTIONS (3)
  - Malaise [Unknown]
  - Skin tightness [Unknown]
  - Hallucination [Recovered/Resolved]

NARRATIVE: CASE EVENT DATE: 20161107
